FAERS Safety Report 10022352 (Version 1)
Quarter: 2014Q1

REPORT INFORMATION
  Report Type: Spontaneous
  Country: US (occurrence: None)
  Receive Date: 20140318
  Receipt Date: 20140318
  Transmission Date: 20141002
  Serious: Yes (Other)
  Sender: FDA-Public Use
  Company Number: None

PATIENT
  Age: 52 Year
  Sex: Female
  Weight: 57.15 kg

DRUGS (1)
  1. MIRVASO TOPICAL GEL 0.33% GALDERMA LABS [Suspect]
     Indication: ROSACEA
     Dosage: APPLY ONCE A DAY ONE WEEK

REACTIONS (3)
  - Burning sensation [None]
  - Flushing [None]
  - Feeling hot [None]
